FAERS Safety Report 21629791 (Version 2)
Quarter: 2023Q1

REPORT INFORMATION
  Report Type: Spontaneous
  Country: US (occurrence: US)
  Receive Date: 20221122
  Receipt Date: 20230118
  Transmission Date: 20230418
  Serious: Yes (Other)
  Sender: FDA-Public Use
  Company Number: US-INTRA-CELLULAR THERAPIES, INC.-2022ICT01603

PATIENT
  Age: 26 Year
  Sex: Male
  Weight: 153.29 kg

DRUGS (5)
  1. CAPLYTA [Suspect]
     Active Substance: LUMATEPERONE
     Indication: Schizophrenia
     Dosage: 1 TABLET (10.5 MG), 1X/DAY AT BEDTIME
     Route: 048
     Dates: start: 20220816, end: 202210
  2. CAPLYTA [Suspect]
     Active Substance: LUMATEPERONE
     Indication: Schizophrenia
     Dosage: 1 TABLET (21 MG), 1X/DAY AT BEDTIME
     Route: 048
     Dates: start: 202210, end: 20221121
  3. OLANZAPINE [Suspect]
     Active Substance: OLANZAPINE
     Dosage: 20 MG, 1X/DAY AT BEDTIME
     Dates: start: 20220816, end: 202210
  4. OLANZAPINE [Suspect]
     Active Substance: OLANZAPINE
     Dosage: 15 MG, 1X/DAY AT BEDTIME
     Dates: start: 202210, end: 20221109
  5. UNSPECIFIED INGREDIENT [Suspect]
     Active Substance: UNSPECIFIED INGREDIENT

REACTIONS (13)
  - Hallucination, auditory [Not Recovered/Not Resolved]
  - Tardive dyskinesia [Recovered/Resolved]
  - Euphoric mood [Recovered/Resolved]
  - Weight increased [Not Recovered/Not Resolved]
  - Cognitive disorder [Recovered/Resolved]
  - Back pain [Unknown]
  - Irritability [Unknown]
  - Inappropriate affect [Not Recovered/Not Resolved]
  - Hypersomnia [Unknown]
  - Dyskinesia [Recovered/Resolved]
  - Fatigue [Unknown]
  - Sedation [Unknown]
  - Muscle spasms [Unknown]

NARRATIVE: CASE EVENT DATE: 20220101
